FAERS Safety Report 9365403 (Version 1)
Quarter: 2013Q2

REPORT INFORMATION
  Report Type: Spontaneous
  Country: US (occurrence: None)
  Receive Date: 20130624
  Receipt Date: 20130624
  Transmission Date: 20140414
  Serious: No
  Sender: FDA-Public Use
  Company Number: None

PATIENT
  Age: 75 Year
  Sex: Female
  Weight: 66.23 kg

DRUGS (1)
  1. DOXYCYCLINE HYCLATE [Suspect]
     Indication: BRONCHITIS
     Route: 048
     Dates: start: 20130521

REACTIONS (3)
  - Pain [None]
  - Lipids abnormal [None]
  - Gait disturbance [None]
